FAERS Safety Report 5130630-3 (Version None)
Quarter: 2006Q4

REPORT INFORMATION
  Report Type: 
  Country: None (occurrence: None)
  Receive Date: 20061013
  Receipt Date: 20060927
  Transmission Date: 20070319
  Serious: Yes (Other)
  Sender: FDA-Public Use
  Company Number: US200609007474

PATIENT
  Age: 44 Year
  Sex: Male

DRUGS (5)
  1. SYMBYAX [Suspect]
     Dosage: D/F, DAILY (1/D), ORAL; D/F, 2/D, ORAL
     Route: 048
     Dates: start: 20060701
  2. GEODON [Concomitant]
  3. RISPERDAL [Concomitant]
  4. ABILIFY [Concomitant]
  5. COGENTIN [Concomitant]

REACTIONS (3)
  - HEAD DISCOMFORT [None]
  - PRESCRIBED OVERDOSE [None]
  - THROAT TIGHTNESS [None]
